FAERS Safety Report 11218599 (Version 5)
Quarter: 2015Q4

REPORT INFORMATION
  Report Type: Report from Study
  Country: TR (occurrence: TR)
  Receive Date: 20150625
  Receipt Date: 20151211
  Transmission Date: 20160304
  Serious: Yes (Hospitalization, Disabling, Other)
  Sender: FDA-Public Use
  Company Number: TR-BAYER-2015-361053

PATIENT
  Age: 45 Year
  Sex: Female

DRUGS (1)
  1. BETAFERON [Suspect]
     Active Substance: INTERFERON BETA-1B
     Indication: MULTIPLE SCLEROSIS
     Dosage: 8 MIU, QOD
     Route: 058
     Dates: start: 20120202

REACTIONS (11)
  - Product use issue [None]
  - Abasia [Recovered/Resolved]
  - Dermatitis bullous [Recovered/Resolved]
  - Influenza like illness [Not Recovered/Not Resolved]
  - Abdominal wall mass [None]
  - Blindness [Recovered/Resolved]
  - Multiple sclerosis [Recovered/Resolved]
  - Gait disturbance [Recovered/Resolved]
  - Pyrexia [Recovered/Resolved]
  - Weight decreased [None]
  - Umbilical erythema [None]

NARRATIVE: CASE EVENT DATE: 20150326
